FAERS Safety Report 25658757 (Version 3)
Quarter: 2025Q3

REPORT INFORMATION
  Report Type: Report from Study
  Country: KW (occurrence: KW)
  Receive Date: 20250808
  Receipt Date: 20250828
  Transmission Date: 20251021
  Serious: No
  Sender: NOVARTIS
  Company Number: KW-002147023-NVSC2025KW124846

PATIENT
  Age: 68 Year
  Sex: Female

DRUGS (1)
  1. LEQVIO [Suspect]
     Active Substance: INCLISIRAN SODIUM
     Indication: Hypercholesterolaemia
     Route: 058
     Dates: start: 20250729

REACTIONS (7)
  - Hypoaesthesia [Recovering/Resolving]
  - Gait disturbance [Recovering/Resolving]
  - Fine motor skill dysfunction [Recovering/Resolving]
  - Migraine [Recovering/Resolving]
  - Chest pain [Recovering/Resolving]
  - Hypotension [Recovering/Resolving]
  - Cough [Not Recovered/Not Resolved]

NARRATIVE: CASE EVENT DATE: 20250729
